FAERS Safety Report 7713415-0 (Version None)
Quarter: 2011Q3

REPORT INFORMATION
  Report Type: 
  Country: None (occurrence: None)
  Receive Date: 20110826
  Receipt Date: 20110818
  Transmission Date: 20111222
  Serious: Yes (Hospitalization)
  Sender: FDA-Public Use
  Company Number: US-JNJFOC-20110809628

PATIENT
  Sex: Male
  Weight: 93.9 kg

DRUGS (6)
  1. OMEPRAZOLE [Concomitant]
  2. MULTI-VITAMINS [Concomitant]
  3. TRAMADOL HCL [Concomitant]
  4. REMICADE [Suspect]
     Indication: INFLAMMATORY BOWEL DISEASE
     Route: 042
     Dates: start: 20100510
  5. AMITRIPTYLINE HCL [Concomitant]
  6. ADDERALL 5 [Concomitant]

REACTIONS (1)
  - ILEECTOMY [None]
